FAERS Safety Report 5141196-6 (Version None)
Quarter: 2006Q4

REPORT INFORMATION
  Report Type: 
  Country: None (occurrence: None)
  Receive Date: 20061026
  Receipt Date: 20061015
  Transmission Date: 20070319
  Serious: Yes (Death)
  Sender: FDA-Public Use
  Company Number: 061016-0000881

PATIENT
  Sex: Female

DRUGS (5)
  1. DACTINOMYCIN [Suspect]
     Indication: GESTATIONAL TROPHOBLASTIC TUMOUR
     Dosage: 0.5 MG;1X;IV
     Route: 042
  2. ETOPOSIDE [Suspect]
     Indication: GESTATIONAL TROPHOBLASTIC TUMOUR
     Dosage: SEE IMAGE
     Route: 042
  3. METHOTREXATE [Suspect]
     Indication: GESTATIONAL TROPHOBLASTIC TUMOUR
     Dosage: SEE IMAGE
     Route: 042
  4. CISPLATINUM (NO PREF. NAME) [Suspect]
     Indication: GESTATIONAL TROPHOBLASTIC TUMOUR
     Dosage: 100 MG/M**2;1X;IV
     Route: 042
  5. LEUCOVORIN CALCIUM [Suspect]
     Indication: GESTATIONAL TROPHOBLASTIC TUMOUR
     Dosage: 15 MG;BID X4 DOSES; IM
     Route: 030

REACTIONS (1)
  - NEUTROPENIC SEPSIS [None]
